FAERS Safety Report 4576913-7 (Version None)
Quarter: 2005Q1

REPORT INFORMATION
  Report Type: 
  Country: None (occurrence: None)
  Receive Date: 20050208
  Receipt Date: 20050201
  Transmission Date: 20050727
  Serious: Yes (Hospitalization)
  Sender: FDA-Public Use
  Company Number: 05-02-0149

PATIENT
  Age: 53 Year
  Sex: Male

DRUGS (2)
  1. CLOZAPINE [Suspect]
     Indication: SCHIZOPHRENIA
     Dosage: 400-500MG QD ORAL
     Route: 048
     Dates: start: 20040701
  2. LITHIUM [Suspect]

REACTIONS (1)
  - THERAPEUTIC AGENT TOXICITY [None]
